FAERS Safety Report 4325402-3 (Version None)
Quarter: 2004Q1

REPORT INFORMATION
  Report Type: 
  Country: None (occurrence: None)
  Receive Date: 20040324
  Receipt Date: 20040308
  Transmission Date: 20041129
  Serious: Yes (Life-Threatening, Other)
  Sender: FDA-Public Use
  Company Number: 200410818GDS

PATIENT
  Age: 60 Year
  Sex: Female
  Weight: 63 kg

DRUGS (5)
  1. MOXIFLOXACIN HCL [Suspect]
     Indication: SINUSITIS
     Dosage: 400 MG, TOTAL DAILY, ORAL
     Route: 048
     Dates: start: 20040201
  2. SERTETIDE [Concomitant]
  3. VENTOLIN [Concomitant]
  4. ZINNAT [Concomitant]
  5. DACORTIN [Concomitant]

REACTIONS (6)
  - ANAPHYLACTIC REACTION [None]
  - DYSPNOEA [None]
  - PRURITUS [None]
  - RASH ERYTHEMATOUS [None]
  - RESPIRATORY ARREST [None]
  - STATUS ASTHMATICUS [None]
